FAERS Safety Report 6450710-X (Version None)
Quarter: 2009Q4

REPORT INFORMATION
  Report Type: 
  Country: None (occurrence: None)
  Receive Date: 20091120
  Receipt Date: 20091120
  Transmission Date: 20100525
  Serious: Yes (Other)
  Sender: FDA-Public Use
  Company Number: None

PATIENT
  Age: 44 Year
  Sex: Female
  Weight: 97.5234 kg

DRUGS (1)
  1. CAPSAICIN 0.075% GLADES [Suspect]
     Indication: ARTHRITIS
     Dosage: SMALL AMOUNT TOP
     Route: 061
     Dates: start: 20091111, end: 20091111

REACTIONS (2)
  - APPLICATION SITE ERYTHEMA [None]
  - APPLICATION SITE PAIN [None]
